FAERS Safety Report 22020447 (Version 1)
Quarter: 2023Q1

REPORT INFORMATION
  Report Type: Spontaneous
  Country: US (occurrence: None)
  Receive Date: 20230217
  Receipt Date: 20230217
  Transmission Date: 20230418
  Serious: Yes (Other)
  Sender: FDA-Public Use
  Company Number: None

PATIENT
  Sex: Female

DRUGS (7)
  1. DALFAMPRIDINE [Suspect]
     Active Substance: DALFAMPRIDINE
     Indication: Multiple sclerosis
     Dosage: FREQUENCY : TWICE A DAY;?
     Route: 048
     Dates: start: 20220822
  2. BACLOFEN [Concomitant]
     Active Substance: BACLOFEN
  3. MAVENCLAD [Concomitant]
     Active Substance: CLADRIBINE
  4. FAMOTIDINE [Concomitant]
     Active Substance: FAMOTIDINE
  5. BOTOX [Concomitant]
     Active Substance: ONABOTULINUMTOXINA
  6. OMEPRAZOLE [Concomitant]
     Active Substance: OMEPRAZOLE
  7. COVID-19 VACCINE NOS [Suspect]
     Active Substance: COVID-19 VACCINE NOS

REACTIONS (6)
  - Cardiac disorder [None]
  - Palpitations [None]
  - Suspected COVID-19 [None]
  - Therapy interrupted [None]
  - Malaise [None]
  - Neuromyelitis optica spectrum disorder [None]
